FAERS Safety Report 10601974 (Version 3)
Quarter: 2019Q3

REPORT INFORMATION
  Report Type: Other
  Country: DE (occurrence: DE)
  Receive Date: 20141124
  Receipt Date: 20190927
  Transmission Date: 20191004
  Serious: Yes (Death, Congenital Anomaly, Other)
  Sender: FDA-Public Use
  Company Number: DE-ASTELLAS-2014US017867

PATIENT
  Age: 1 Day
  Sex: Male
  Weight: 2 kg

DRUGS (4)
  1. METOPROLOL SUCCINATE. [Suspect]
     Active Substance: METOPROLOL SUCCINATE
     Indication: FOETAL EXPOSURE DURING PREGNANCY
     Dosage: 142.5 [MG/D (95-0-47.5) ]/ SINCE 2012. THERAPY PROBABLY ONGOING OR CHANGED TO BELOC ZOK MITE
     Route: 064
     Dates: start: 20130702, end: 20131217
  2. DOPEGYT [Suspect]
     Active Substance: METHYLDOPA
     Indication: FOETAL EXPOSURE DURING PREGNANCY
     Route: 064
     Dates: start: 20130702, end: 20140114
  3. AZATHIOPRINE. [Suspect]
     Active Substance: AZATHIOPRINE
     Indication: FOETAL EXPOSURE DURING PREGNANCY
     Route: 064
     Dates: start: 20130702, end: 20140114
  4. PROGRAF [Suspect]
     Active Substance: TACROLIMUS\TACROLIMUS ANHYDROUS
     Indication: PROPHYLAXIS AGAINST TRANSPLANT REJECTION
     Dosage: 5.5 MILLIGRAM DAILY; 5.5[MG/D (3-0-2.5 MG/D) / MOTHER SINCE 2007
     Route: 064
     Dates: start: 20130702, end: 20140114

REACTIONS (3)
  - Congenital cystic lung [Fatal]
  - Hydrops foetalis [Fatal]
  - Neonatal respiratory failure [Fatal]

NARRATIVE: CASE EVENT DATE: 20140114
